FAERS Safety Report 5204204-X (Version None)
Quarter: 2007Q1

REPORT INFORMATION
  Report Type: 
  Country: None (occurrence: None)
  Receive Date: 20070110
  Receipt Date: 20070104
  Transmission Date: 20070707
  Serious: Yes (Other)
  Sender: FDA-Public Use
  Company Number: US-PFIZER INC-2007001845

PATIENT
  Sex: Male
  Weight: 90.7 kg

DRUGS (4)
  1. LIPITOR [Suspect]
     Indication: BLOOD CHOLESTEROL INCREASED
  2. PROPRANOLOL [Concomitant]
  3. LISINOPRIL [Concomitant]
  4. ALL OTHER THERAPEUTIC PRODUCTS [Concomitant]

REACTIONS (6)
  - C-REACTIVE PROTEIN INCREASED [None]
  - HYPOTONIA [None]
  - MUSCLE ATROPHY [None]
  - MYOSITIS [None]
  - PROSTATE CANCER [None]
  - WEIGHT DECREASED [None]
